FAERS Safety Report 19014790 (Version 3)
Quarter: 2021Q2

REPORT INFORMATION
  Report Type: Spontaneous
  Country: PL (occurrence: PL)
  Receive Date: 20210316
  Receipt Date: 20210402
  Transmission Date: 20210717
  Serious: Yes (Hospitalization, Other)
  Sender: FDA-Public Use
  Company Number: PL-PFIZER INC-2021256258

PATIENT
  Age: 81 Year
  Sex: Male

DRUGS (16)
  1. BISOPROLOL [Suspect]
     Active Substance: BISOPROLOL
     Dosage: 10 MILLIGRAM
     Route: 042
  2. LEVOTHYROXINE. [Suspect]
     Active Substance: LEVOTHYROXINE
     Dosage: 75 MICROGRAM
     Route: 065
  3. EPLERENONE. [Suspect]
     Active Substance: EPLERENONE
     Dosage: 50 MILLIGRAM
     Route: 065
  4. AMIODARONE [Suspect]
     Active Substance: AMIODARONE
     Dosage: 150 MILLIGRAM
     Route: 042
  5. TORASEMIDE [Suspect]
     Active Substance: TORSEMIDE
     Dosage: 5 MILLIGRAM
     Route: 065
  6. ATORVASTATIN [Concomitant]
     Active Substance: ATORVASTATIN
     Dosage: 20 MILLIGRAM
     Route: 065
  7. BISOPROLOL [Suspect]
     Active Substance: BISOPROLOL
     Dosage: 2.5 MILLIGRAM, BID
     Route: 065
  8. PANTOPRAZOLE [Suspect]
     Active Substance: PANTOPRAZOLE
     Dosage: 20 MILLIGRAM
  9. RIVAROXABAN [Suspect]
     Active Substance: RIVAROXABAN
     Dosage: 15 MILLIGRAM
     Route: 065
  10. SACUBITRIL VALSARTAN SODIUM HYDRATE [Suspect]
     Active Substance: SACUBITRIL\VALSARTAN
     Dosage: 51/49 MG/DL, BID
     Route: 065
  11. RAMIPRIL. [Suspect]
     Active Substance: RAMIPRIL
     Dosage: 5 MILLIGRAM
     Route: 065
  12. TORASEMIDE [Suspect]
     Active Substance: TORSEMIDE
     Dosage: 10 MILLIGRAM
     Route: 065
  13. CLOPIDOGREL [Suspect]
     Active Substance: CLOPIDOGREL BISULFATE
     Dosage: 75 MILLIGRAM
     Route: 065
  14. BISOPROLOL [Suspect]
     Active Substance: BISOPROLOL
     Dosage: 5 MILLIGRAM, BID
     Route: 065
  15. SACUBITRIL VALSARTAN SODIUM HYDRATE [Suspect]
     Active Substance: SACUBITRIL\VALSARTAN
     Dosage: 24/26MG , BID
     Route: 065
  16. EPLENOCARD [Concomitant]
     Dosage: 50 MILLIGRAM
     Route: 065

REACTIONS (4)
  - Ventricular tachycardia [Recovered/Resolved]
  - Ventricular arrhythmia [Recovered/Resolved]
  - Dyspnoea at rest [Unknown]
  - General physical condition abnormal [Unknown]
